FAERS Safety Report 8144600-4 (Version None)
Quarter: 2012Q1

REPORT INFORMATION
  Report Type: 
  Country: None (occurrence: None)
  Receive Date: 20120217
  Receipt Date: 20120208
  Transmission Date: 20120608
  Serious: Yes (Other)
  Sender: FDA-Public Use
  Company Number: US-JNJFOC-20120205392

PATIENT
  Sex: Female
  Weight: 97.07 kg

DRUGS (1)
  1. REMICADE [Suspect]
     Indication: RHEUMATOID ARTHRITIS
     Route: 042

REACTIONS (6)
  - MUSCULOSKELETAL PAIN [None]
  - HYPOKINESIA [None]
  - EYE HAEMORRHAGE [None]
  - PALPITATIONS [None]
  - GAIT DISTURBANCE [None]
  - OEDEMA PERIPHERAL [None]
